FAERS Safety Report 8173186 (Version 2)
Quarter: 2013Q2

REPORT INFORMATION
  Report Type: Report from Study
  Country: DE (occurrence: DE)
  Receive Date: 20111007
  Receipt Date: 20130411
  Transmission Date: 20140414
  Serious: Yes (Hospitalization)
  Sender: FDA-Public Use
  Company Number: DE-PFIZER INC-2011233311

PATIENT
  Age: 72 Year
  Sex: Female
  Weight: 45 kg

DRUGS (7)
  1. IRINOTECAN HCL [Suspect]
     Indication: COLORECTAL CANCER METASTATIC
     Dosage: 252 MG, 2X/WEEK
     Route: 042
     Dates: start: 20110901
  2. ONDANSETRON [Suspect]
     Dosage: 8 (NO UNITS PROVIDED)
     Route: 042
     Dates: start: 20110901
  3. BEVACIZUMAB [Suspect]
     Indication: COLORECTAL CANCER METASTATIC
     Dosage: 225 MG, 2X/WEEK
     Route: 042
     Dates: start: 20110901
  4. FLUOROURACIL [Suspect]
     Indication: COLORECTAL CANCER METASTATIC
     Dosage: 400 MG/M2 2X/WEEK, CYCLIC
     Route: 040
     Dates: start: 20110901
  5. FLUOROURACIL [Suspect]
     Dosage: 1200 MG/M2, 2X/WEEK, CYCLIC
     Route: 042
     Dates: start: 20110901
  6. FOLINIC ACID [Suspect]
     Indication: COLORECTAL CANCER METASTATIC
     Dosage: 400 MG/M2, CYCLIC, 2X/WEEK
     Route: 042
     Dates: start: 20110901
  7. METOCLOPRAMIDE [Suspect]
     Dosage: 20 GTT, 3X/DAY
     Route: 048

REACTIONS (1)
  - Weight decreased [Unknown]
